FAERS Safety Report 9897469 (Version 3)
Quarter: 2014Q3

REPORT INFORMATION
  Report Type: Spontaneous
  Country: US (occurrence: US)
  Receive Date: 20140214
  Receipt Date: 20140722
  Transmission Date: 20150326
  Serious: Yes (Hospitalization, Other)
  Sender: FDA-Public Use
  Company Number: US-BAYER-2014-023305

PATIENT
  Age: 34 Year
  Sex: Female
  Weight: 102.4 kg

DRUGS (1)
  1. MIRENA [Suspect]
     Active Substance: LEVONORGESTREL
     Dosage: 20 MCG/24HR, UNK
     Dates: start: 20050114, end: 20110129

REACTIONS (7)
  - Device misuse [None]
  - Injury [None]
  - Gastrointestinal injury [None]
  - Device failure [None]
  - Uterine perforation [None]
  - Emotional distress [None]
  - Pain [None]

NARRATIVE: CASE EVENT DATE: 201101
